FAERS Safety Report 9348832 (Version 1)
Quarter: 2013Q2

REPORT INFORMATION
  Report Type: Spontaneous
  Country: US (occurrence: US)
  Receive Date: 20130614
  Receipt Date: 20130614
  Transmission Date: 20140414
  Serious: No
  Sender: FDA-Public Use
  Company Number: US-PFIZER INC-2013178783

PATIENT
  Age: 52 Year
  Sex: Female
  Weight: 72.56 kg

DRUGS (6)
  1. CHANTIX [Suspect]
     Indication: SMOKING CESSATION THERAPY
     Dosage: 0.5 MG, 1X/DAY
     Dates: start: 201306
  2. CHANTIX [Suspect]
     Dosage: 0.5 MG, UNK
     Dates: start: 201306
  3. PREMARIN [Concomitant]
     Indication: HOT FLUSH
     Dosage: 1.25 MG, 1X/DAY
     Route: 048
  4. PREMARIN [Concomitant]
     Indication: MENOPAUSAL SYMPTOMS
  5. VALIUM [Concomitant]
     Indication: ANXIETY
     Dosage: 10 MG, AS NEEDED
  6. LEXAPRO [Concomitant]
     Indication: ANXIETY
     Dosage: 20 MG, UNK

REACTIONS (2)
  - Nausea [Not Recovered/Not Resolved]
  - Blood cholesterol increased [Unknown]
